FAERS Safety Report 13185818 (Version 3)
Quarter: 2019Q2

REPORT INFORMATION
  Report Type: Spontaneous
  Country: PL (occurrence: PL)
  Receive Date: 20170203
  Receipt Date: 20190606
  Transmission Date: 20190711
  Serious: Yes (Hospitalization, Other)
  Sender: FDA-Public Use
  Company Number: PL-GILEAD-2017-0256322

PATIENT
  Age: 54 Year
  Sex: Male

DRUGS (6)
  1. FUROSEMID [FUROSEMIDE] [Concomitant]
  2. TRAMAL [Concomitant]
     Active Substance: TRAMADOL
  3. NORPRESS [ATENOLOL] [Concomitant]
  4. ZALDIAR [Concomitant]
     Active Substance: ACETAMINOPHEN\TRAMADOL HYDROCHLORIDE
  5. SOVALDI [Suspect]
     Active Substance: SOFOSBUVIR
     Indication: CHRONIC HEPATITIS C
     Route: 065
  6. RIBAVIRIN. [Suspect]
     Active Substance: RIBAVIRIN
     Indication: CHRONIC HEPATITIS C
     Route: 065

REACTIONS (4)
  - Vocal cord paralysis [Unknown]
  - Oesophageal varices haemorrhage [Unknown]
  - Anaemia [Unknown]
  - Gastric ulcer [Recovered/Resolved]
